FAERS Safety Report 10249081 (Version 1)
Quarter: 2014Q2

REPORT INFORMATION
  Report Type: Spontaneous
  Country: US (occurrence: None)
  Receive Date: 20140522
  Receipt Date: 20140522
  Transmission Date: 20141212
  Serious: No
  Sender: FDA-Public Use
  Company Number: 1000053307

PATIENT
  Age: 70 Year
  Sex: Male

DRUGS (11)
  1. TUDORZA PRESSAIR (ACLIDINIUM BROMIDE) (400 MICROGRAM, POWDER) [Suspect]
     Indication: CHRONIC OBSTRUCTIVE PULMONARY DISEASE
     Dosage: 800 UG (400 UG,2 IN 1 D),RESPIRATORY(INHALATION)
     Route: 055
     Dates: start: 201304
  2. PREVACID (LANSOPRAZOLE) [Concomitant]
  3. SYNTHROID (LEVOTHYROXINE SODIUM) [Concomitant]
  4. PRAVACHOL (PRAVASTATIN SODIUM) [Concomitant]
  5. QNASL (BECLOMETASONE DIPROPIONATE) [Concomitant]
  6. PROVENTIL (ALBUTEROL) [Concomitant]
  7. NEXIUM (ESOMEPRAZOLE) [Concomitant]
  8. COZAAR (LOSARTAN POTASSIUM) [Concomitant]
  9. XYZAL (LEVOCETIRIZINE DIHYDROCHLORIDE) [Concomitant]
  10. SINGULAIR (MONTELUKAST SODIUM) [Concomitant]
  11. ADVAIR DISKUS [Concomitant]

REACTIONS (2)
  - Cough [None]
  - Dry mouth [None]
